FAERS Safety Report 5279524-3 (Version None)
Quarter: 2007Q1

REPORT INFORMATION
  Report Type: 
  Country: None (occurrence: None)
  Receive Date: 20070328
  Receipt Date: 20070316
  Transmission Date: 20070707
  Serious: Yes (Other)
  Sender: FDA-Public Use
  Company Number: GB-PFIZER INC-2007009719

PATIENT
  Age: 56 Year
  Sex: Male
  Weight: 88 kg

DRUGS (2)
  1. LYRICA [Suspect]
     Indication: BACK PAIN
     Route: 048
     Dates: start: 20060906, end: 20061015
  2. AMITRIPTYLINE HCL [Concomitant]
     Indication: BACK PAIN
     Dates: start: 20060503

REACTIONS (4)
  - ABDOMINAL DISTENSION [None]
  - GASTRIC DISORDER [None]
  - HUNGER [None]
  - WEIGHT INCREASED [None]
